FAERS Safety Report 9788414 (Version 1)
Quarter: 2013Q4

REPORT INFORMATION
  Report Type: Spontaneous
  Country: GB (occurrence: GB)
  Receive Date: 20131230
  Receipt Date: 20131230
  Transmission Date: 20140711
  Serious: Yes (Other)
  Sender: FDA-Public Use
  Company Number: GB-UCBSA-107351

PATIENT
  Sex: 0

DRUGS (1)
  1. LACOSAMIDE [Suspect]
     Dosage: UNKNOWN

REACTIONS (17)
  - Convulsion [Unknown]
  - Depression [Unknown]
  - Myoclonus [Unknown]
  - Dizziness [Unknown]
  - Rash [Unknown]
  - Confusional state [Unknown]
  - Vision blurred [Unknown]
  - Fatigue [Unknown]
  - Aggression [Unknown]
  - Nausea [Unknown]
  - Constipation [Unknown]
  - Dysarthria [Unknown]
  - Muscle spasms [Unknown]
  - Anxiety [Unknown]
  - Peripheral coldness [Unknown]
  - Diplopia [Unknown]
  - Gait disturbance [Unknown]
